FAERS Safety Report 11516744 (Version 2)
Quarter: 2015Q3

REPORT INFORMATION
  Report Type: Report from Study
  Country: US (occurrence: US)
  Receive Date: 20150917
  Receipt Date: 20150918
  Transmission Date: 20151125
  Serious: Yes (Other)
  Sender: FDA-Public Use
  Company Number: US-BAYER-2015-364486

PATIENT
  Age: 58 Year
  Sex: Female

DRUGS (1)
  1. STIVARGA [Suspect]
     Active Substance: REGORAFENIB
     Indication: COLORECTAL CANCER
     Dosage: 120 MG, QD
     Route: 048
     Dates: start: 20150608, end: 20150824

REACTIONS (6)
  - Hypoaesthesia [None]
  - Decreased appetite [Not Recovered/Not Resolved]
  - Colorectal cancer [None]
  - Fatigue [None]
  - Fatigue [None]
  - Paraesthesia [None]

NARRATIVE: CASE EVENT DATE: 201506
